FAERS Safety Report 16971180 (Version 2)
Quarter: 2019Q4

REPORT INFORMATION
  Report Type: Spontaneous
  Country: IL (occurrence: IL)
  Receive Date: 20191029
  Receipt Date: 20191204
  Transmission Date: 20200122
  Serious: Yes (Death)
  Sender: FDA-Public Use
  Company Number: IL-ABBVIE-19K-082-2981849-00

PATIENT
  Age: 61 Year
  Sex: Female
  Weight: 85 kg

DRUGS (2)
  1. VENETOCLAX. [Suspect]
     Active Substance: VENETOCLAX
     Dosage: 800 MG
     Route: 048
  2. VENETOCLAX. [Suspect]
     Active Substance: VENETOCLAX
     Indication: WALDENSTROM^S MACROGLOBULINAEMIA
     Route: 048
     Dates: start: 20170102

REACTIONS (1)
  - Escherichia sepsis [Fatal]

NARRATIVE: CASE EVENT DATE: 20191007
